FAERS Safety Report 10785968 (Version 1)
Quarter: 2015Q1

REPORT INFORMATION
  Report Type: Spontaneous
  Country: US (occurrence: US)
  Receive Date: 20150211
  Receipt Date: 20150211
  Transmission Date: 20150721
  Serious: Yes (Death, Other)
  Sender: FDA-Public Use
  Company Number: US-ROXANE LABORATORIES, INC.-2015-RO-00213RO

PATIENT
  Age: 51 Year
  Sex: Male

DRUGS (2)
  1. METHOTREXATE [Suspect]
     Active Substance: METHOTREXATE
     Indication: HAIRY CELL LEUKAEMIA
     Route: 065
  2. 2-CHLORODEOXYADENOSINE [Suspect]
     Active Substance: CLADRIBINE
     Indication: HAIRY CELL LEUKAEMIA
     Route: 065

REACTIONS (7)
  - Escherichia sepsis [Fatal]
  - Neutropenia [Unknown]
  - Hypotension [Unknown]
  - Gastrointestinal haemorrhage [Fatal]
  - Tachycardia [Unknown]
  - Anaemia [Unknown]
  - Haemorrhage [Unknown]
